FAERS Safety Report 4459932-0 (Version None)
Quarter: 2004Q3

REPORT INFORMATION
  Report Type: 
  Country: None (occurrence: None)
  Receive Date: 20040928
  Receipt Date: 20030908
  Transmission Date: 20050211
  Serious: No
  Sender: FDA-Public Use
  Company Number: US-GLAXOSMITHKLINE-A0425074A

PATIENT
  Age: 43 Year
  Sex: Female

DRUGS (9)
  1. SEREVENT [Suspect]
     Indication: ASTHMA
     Dosage: 50MCG TWICE PER DAY
     Route: 055
     Dates: start: 20030906
  2. SYNTHROID [Concomitant]
  3. XANAX [Concomitant]
  4. BENTYL [Concomitant]
  5. VITAMIN B-12 [Concomitant]
  6. VITAMIN B3 [Concomitant]
  7. DHEA [Concomitant]
  8. PLAQUENIL [Concomitant]
  9. PANCREASE [Concomitant]

REACTIONS (3)
  - ABDOMINAL PAIN UPPER [None]
  - DIZZINESS [None]
  - NAUSEA [None]
